FAERS Safety Report 13681744 (Version 1)
Quarter: 2017Q2

REPORT INFORMATION
  Report Type: Spontaneous
  Country: US (occurrence: US)
  Receive Date: 20170622
  Receipt Date: 20170622
  Transmission Date: 20170830
  Serious: Yes (Death)
  Sender: FDA-Public Use
  Company Number: None

PATIENT
  Sex: Female
  Weight: 93.5 kg

DRUGS (1)
  1. SODIUM BICARBONATE. [Suspect]
     Active Substance: SODIUM BICARBONATE
     Indication: METABOLIC ACIDOSIS
     Dosage: OTHER FREQUENCY:CONTINUOUS DRIP;?
     Route: 041
     Dates: start: 20170610, end: 20170611

REACTIONS (3)
  - Product use issue [None]
  - Sepsis [None]
  - Pseudomonas infection [None]
